FAERS Safety Report 9280205 (Version 1)
Quarter: 2012Q4

REPORT INFORMATION
  Report Type: Spontaneous
  Country: JP (occurrence: None)
  Receive Date: 20120919
  Receipt Date: 20120919
  Transmission Date: 20130627
  Serious: Yes (Hospitalization)
  Sender: FDA-Public Use
  Company Number: TCI2012A03391

PATIENT
  Age: 67 Year
  Sex: Male

DRUGS (2)
  1. ACTOS (PIOGLITAZONE HYDROCHLORIDE) [Suspect]
     Dosage: (15 mg, 1 in 1 d)
     Route: 048
     Dates: start: 20090814, end: 20100305
  2. ACTOS (PIOGLITAZONE HYDROCHLORIDE) [Suspect]
     Dosage: (30 mg, 1 in 1 d)
     Route: 048
     Dates: start: 20100306, end: 20120521

REACTIONS (2)
  - Bladder transitional cell carcinoma [None]
  - Prostate cancer [None]
